FAERS Safety Report 7068670-X (Version None)
Quarter: 2010Q4

REPORT INFORMATION
  Report Type: 
  Country: None (occurrence: None)
  Receive Date: 20101028
  Receipt Date: 20101018
  Transmission Date: 20110411
  Serious: Yes (Other)
  Sender: FDA-Public Use
  Company Number: US-EISAI INC.-E3810-04152-CLI-US

PATIENT
  Sex: Male
  Weight: 9 kg

DRUGS (2)
  1. RABEPRAZOLE SODIUM [Suspect]
     Route: 048
     Dates: start: 20100904, end: 20101001
  2. MIRALAX [Concomitant]
     Indication: CONSTIPATION
     Route: 048
     Dates: start: 20100924

REACTIONS (1)
  - BETA 2 MICROGLOBULIN INCREASED [None]
